FAERS Safety Report 19990225 (Version 1)
Quarter: 2021Q4

REPORT INFORMATION
  Report Type: Spontaneous
  Country: US (occurrence: US)
  Receive Date: 20211022
  Receipt Date: 20211022
  Transmission Date: 20220304
  Serious: Yes (Hospitalization)
  Sender: FDA-Public Use
  Company Number: None

PATIENT
  Age: 70 Year
  Sex: Female
  Weight: 88.65 kg

DRUGS (10)
  1. ZARXIO [Suspect]
     Active Substance: FILGRASTIM-SNDZ
     Indication: Myelodysplastic syndrome
     Dates: start: 20190529
  2. ALENDRONATE [Concomitant]
     Active Substance: ALENDRONATE SODIUM
  3. CARVEDILOL [Concomitant]
     Active Substance: CARVEDILOL
  4. CLONIDINE [Concomitant]
     Active Substance: CLONIDINE
  5. FLONASE [Concomitant]
     Active Substance: FLUTICASONE PROPIONATE
  6. FUROSEMIDE [Concomitant]
     Active Substance: FUROSEMIDE
  7. HYDRALAZINE [Concomitant]
     Active Substance: HYDRALAZINE HYDROCHLORIDE
  8. MELOXICAM [Concomitant]
     Active Substance: MELOXICAM
  9. PROAIR HFA [Concomitant]
     Active Substance: ALBUTEROL SULFATE
  10. PROCRIT [Concomitant]
     Active Substance: ERYTHROPOIETIN

REACTIONS (2)
  - Cardiac disorder [None]
  - Blood pressure abnormal [None]

NARRATIVE: CASE EVENT DATE: 20211014
